FAERS Safety Report 17106665 (Version 1)
Quarter: 2019Q4

REPORT INFORMATION
  Report Type: Report from Study
  Country: US (occurrence: US)
  Receive Date: 20191203
  Receipt Date: 20191203
  Transmission Date: 20200122
  Serious: Yes (Other)
  Sender: FDA-Public Use
  Company Number: US-BAYER-2019-213792

PATIENT
  Age: 60 Year
  Sex: Female

DRUGS (1)
  1. ADEMPAS [Suspect]
     Active Substance: RIOCIGUAT
     Indication: PULMONARY ARTERIAL HYPERTENSION
     Dosage: 0.5 MG, TID
     Route: 048
     Dates: start: 20191106

REACTIONS (8)
  - Myalgia [None]
  - Mobility decreased [None]
  - Decreased appetite [None]
  - Migraine [None]
  - Nausea [None]
  - Vomiting [None]
  - Dizziness postural [None]
  - Abdominal pain upper [None]

NARRATIVE: CASE EVENT DATE: 201911
